FAERS Safety Report 7985263-8 (Version None)
Quarter: 2011Q4

REPORT INFORMATION
  Report Type: 
  Country: None (occurrence: None)
  Receive Date: 20111216
  Receipt Date: 20111202
  Transmission Date: 20120403
  Serious: Yes (Hospitalization)
  Sender: FDA-Public Use
  Company Number: AT-SANOFI-AVENTIS-200911622GDDC

PATIENT
  Age: 67 Year
  Sex: Male
  Weight: 90 kg

DRUGS (11)
  1. CETUXIMAB [Concomitant]
     Route: 042
     Dates: start: 20090123, end: 20090223
  2. CILAZAPRIL [Concomitant]
     Route: 048
  3. GLUCOPHAGE [Concomitant]
     Route: 048
  4. NAVOBAN [Concomitant]
  5. DIBONDRIN [Concomitant]
  6. PANTOPRAZOLE [Concomitant]
     Route: 048
  7. DEXABENE [Concomitant]
  8. CARVEDILOL [Concomitant]
     Route: 048
  9. CISPLATIN [Suspect]
     Route: 042
     Dates: start: 20090213, end: 20090214
  10. CETUXIMAB [Concomitant]
     Route: 042
     Dates: start: 20090213, end: 20090213
  11. DOCETAXEL [Suspect]
     Route: 042
     Dates: start: 20090123, end: 20090213

REACTIONS (1)
  - GOUTY ARTHRITIS [None]
